FAERS Safety Report 11717783 (Version 13)
Quarter: 2018Q4

REPORT INFORMATION
  Report Type: Spontaneous
  Country: US (occurrence: US)
  Receive Date: 20151110
  Receipt Date: 20181214
  Transmission Date: 20190204
  Serious: Yes (Other)
  Sender: FDA-Public Use
  Company Number: PHEH2015US022842

PATIENT
  Sex: Female
  Weight: 99.77 kg

DRUGS (4)
  1. ONDANSETRON HYDROCHLORIDE. [Suspect]
     Active Substance: ONDANSETRON HYDROCHLORIDE
     Indication: MORNING SICKNESS
     Dosage: 4 MG, UNK
     Route: 048
     Dates: start: 2014, end: 2015
  2. ONDANSETRON HYDROCHLORIDE. [Suspect]
     Active Substance: ONDANSETRON HYDROCHLORIDE
     Indication: MORNING SICKNESS
     Dosage: 4 MG PER 2 ML, QD
     Route: 042
     Dates: start: 20140814, end: 20140814
  3. ZOFRAN ODT [Suspect]
     Active Substance: ONDANSETRON HYDROCHLORIDE
     Indication: MORNING SICKNESS
     Dosage: 4 MG, TID
     Route: 048
     Dates: start: 20140821, end: 201506
  4. ONDANSETRON HYDROCHLORIDE. [Suspect]
     Active Substance: ONDANSETRON HYDROCHLORIDE
     Dosage: 4 MG PER 2 ML, QD
     Route: 042
     Dates: start: 20141013, end: 20141013

REACTIONS (9)
  - Anxiety [Unknown]
  - Emotional distress [Unknown]
  - Pain [Unknown]
  - Maternal exposure during pregnancy [Unknown]
  - Urinary tract infection [Unknown]
  - Pharyngitis [Unknown]
  - Product use in unapproved indication [Unknown]
  - Injury [Unknown]
  - Dyspepsia [Unknown]
